FAERS Safety Report 9330678 (Version 1)
Quarter: 2013Q2

REPORT INFORMATION
  Report Type: Spontaneous
  Country: US (occurrence: None)
  Receive Date: 20130604
  Receipt Date: 20130604
  Transmission Date: 20140414
  Serious: Yes (Hospitalization)
  Sender: FDA-Public Use
  Company Number: None

PATIENT
  Age: 46 Year
  Sex: Female

DRUGS (1)
  1. TECFIDERA [Suspect]
     Indication: MULTIPLE SCLEROSIS
     Dosage: 120 MG 14 CAPS BD X 7 DAYS
     Route: 048
     Dates: start: 20130508, end: 20130522

REACTIONS (7)
  - Fall [None]
  - Loss of consciousness [None]
  - Blood pressure decreased [None]
  - Blood pressure increased [None]
  - Vomiting [None]
  - Flushing [None]
  - Therapy cessation [None]
